FAERS Safety Report 8374457-8 (Version None)
Quarter: 2012Q2

REPORT INFORMATION
  Report Type: 
  Country: None (occurrence: None)
  Receive Date: 20120521
  Receipt Date: 20120510
  Transmission Date: 20120825
  Serious: Yes (Other)
  Sender: FDA-Public Use
  Company Number: US-ASTRAZENECA-2011SE64692

PATIENT
  Age: 74 Year
  Sex: Male
  Weight: 88.9 kg

DRUGS (7)
  1. OMEPRAZOLE [Concomitant]
     Indication: ABDOMINAL DISCOMFORT
  2. LIPITOR [Concomitant]
  3. ALBUTEROL [Concomitant]
     Indication: LUNG DISORDER
  4. XANAX [Concomitant]
  5. BRILINTA [Suspect]
     Indication: STENT PLACEMENT
     Route: 048
  6. LISINOPRIL [Concomitant]
     Indication: BLOOD PRESSURE
  7. ADVAIR DISKUS 100/50 [Concomitant]
     Dosage: 250/50

REACTIONS (2)
  - HAEMOPTYSIS [None]
  - HAEMATOMA [None]
